FAERS Safety Report 7617434-4 (Version None)
Quarter: 2011Q3

REPORT INFORMATION
  Report Type: 
  Country: None (occurrence: None)
  Receive Date: 20110718
  Receipt Date: 20110713
  Transmission Date: 20111222
  Serious: Yes (Death, Other)
  Sender: FDA-Public Use
  Company Number: US-PFIZER INC-2011056982

PATIENT
  Sex: Male

DRUGS (14)
  1. NIFEDICAL [Concomitant]
     Indication: CHEST PAIN
     Dosage: UNK
     Dates: start: 20020501, end: 20080501
  2. COZAAR [Concomitant]
     Indication: HYPERTENSION
     Dosage: UNK
     Dates: start: 20061101, end: 20080501
  3. PLAVIX [Concomitant]
     Dosage: UNK
     Dates: start: 20070501, end: 20080501
  4. ADVAIR DISKUS 100/50 [Concomitant]
     Indication: CHRONIC OBSTRUCTIVE PULMONARY DISEASE
     Dosage: UNK
     Dates: start: 20041201, end: 20080501
  5. SIMVASTATIN [Concomitant]
     Indication: BLOOD CHOLESTEROL INCREASED
     Dosage: UNK
     Dates: start: 20070501, end: 20080501
  6. ZITHROMAX [Concomitant]
     Indication: ANTIBIOTIC THERAPY
     Dosage: UNK
     Dates: start: 20020301, end: 20080501
  7. NIFEDICAL [Concomitant]
     Indication: HYPERTENSION
  8. CHANTIX [Suspect]
     Indication: SMOKING CESSATION THERAPY
     Dosage: 1 MG, UNK
     Dates: start: 20070301, end: 20070401
  9. LORAZEPAM [Concomitant]
     Indication: ANXIETY
     Dosage: UNK
     Dates: start: 20041201, end: 20080501
  10. CHANTIX [Suspect]
     Dosage: 1 MG, UNK
     Dates: start: 20071001, end: 20080501
  11. ALBUTEROL SULFATE AUTOHALER [Concomitant]
     Indication: CHRONIC OBSTRUCTIVE PULMONARY DISEASE
     Dosage: UNK
     Dates: start: 20020501, end: 20080501
  12. DUONEB [Concomitant]
     Indication: CHRONIC OBSTRUCTIVE PULMONARY DISEASE
     Dosage: UNK
     Dates: start: 20061101, end: 20080501
  13. SPIRIVA [Concomitant]
     Indication: CHRONIC OBSTRUCTIVE PULMONARY DISEASE
     Dosage: UNK
     Dates: start: 20070501, end: 20080501
  14. PROAIR HFA [Concomitant]
     Indication: CHRONIC OBSTRUCTIVE PULMONARY DISEASE
     Dosage: UNK
     Dates: start: 20070501, end: 20080501

REACTIONS (4)
  - DEPRESSION [None]
  - COMPLETED SUICIDE [None]
  - ANXIETY [None]
  - ABNORMAL DREAMS [None]
